FAERS Safety Report 8143366-1 (Version None)
Quarter: 2012Q1

REPORT INFORMATION
  Report Type: 
  Country: None (occurrence: None)
  Receive Date: 20120217
  Receipt Date: 20120206
  Transmission Date: 20120608
  Serious: Yes (Hospitalization)
  Sender: FDA-Public Use
  Company Number: JP-JNJFOC-20120112133

PATIENT
  Sex: Female
  Weight: 46 kg

DRUGS (7)
  1. OMEPRAZOLE [Concomitant]
     Indication: PROPHYLAXIS
     Route: 048
  2. REMICADE [Suspect]
     Indication: RHEUMATOID ARTHRITIS
     Route: 042
     Dates: start: 20111020
  3. METHOTREXATE [Suspect]
     Indication: RHEUMATOID ARTHRITIS
     Route: 048
  4. REMICADE [Suspect]
     Dosage: 3RD DOSE
     Route: 042
     Dates: start: 20111209
  5. FOLIC ACID [Concomitant]
     Indication: PROPHYLAXIS
     Route: 048
     Dates: start: 20100512
  6. NEUROTROPIN [Concomitant]
     Indication: RHEUMATOID ARTHRITIS
     Dosage: 4 TABLETS
     Route: 048
     Dates: start: 20090703
  7. METHOTREXATE [Suspect]
     Route: 048
     Dates: start: 20091111

REACTIONS (1)
  - PNEUMOCYSTIS JIROVECI PNEUMONIA [None]
